FAERS Safety Report 11029530 (Version 1)
Quarter: 2015Q2

REPORT INFORMATION
  Report Type: Spontaneous
  Country: US (occurrence: None)
  Receive Date: 20150413
  Receipt Date: 20150413
  Transmission Date: 20150821
  Serious: Yes (Other)
  Sender: FDA-Public Use
  Company Number: PR6775

PATIENT

DRUGS (1)
  1. THERATEARS LUBRICANT EYE DROPS [Suspect]
     Active Substance: CARBOXYMETHYLCELLULOSE SODIUM
     Dates: start: 20150326

REACTIONS (5)
  - Ocular hyperaemia [None]
  - Scleral oedema [None]
  - Eye pruritus [None]
  - Eye swelling [None]
  - Eye ulcer [None]

NARRATIVE: CASE EVENT DATE: 20150326
